FAERS Safety Report 9410826 (Version 1)
Quarter: 2013Q3

REPORT INFORMATION
  Report Type: Report from Study
  Country: US (occurrence: US)
  Receive Date: 20130719
  Receipt Date: 20130719
  Transmission Date: 20140515
  Serious: Yes (Other)
  Sender: FDA-Public Use
  Company Number: US-ABBOTT-13P-163-1119711-00

PATIENT
  Age: 77 Year
  Sex: Male

DRUGS (1)
  1. HUMIRA [Suspect]
     Indication: CROHN^S DISEASE
     Route: 058
     Dates: start: 20120215

REACTIONS (5)
  - Gastrointestinal tube insertion [Unknown]
  - Deafness [Unknown]
  - Skin cancer [Unknown]
  - Cough [Unknown]
  - Eye pain [Unknown]
